FAERS Safety Report 4709406-4 (Version None)
Quarter: 2005Q3

REPORT INFORMATION
  Report Type: 
  Country: None (occurrence: None)
  Receive Date: 20050705
  Receipt Date: 20050616
  Transmission Date: 20060218
  Serious: Yes (Hospitalization)
  Sender: FDA-Public Use
  Company Number: DSA_70668_2005

PATIENT
  Age: 21 Year
  Sex: Female
  Weight: 63 kg

DRUGS (2)
  1. AZATHIOPRINE [Suspect]
     Indication: CROHN'S DISEASE
     Dosage: 2.5 MG/KG QDAY PO
     Route: 048
     Dates: start: 20050425
  2. INFLIXIMAB/PLACEBO [Suspect]
     Indication: CROHN'S DISEASE
     Dosage: 5 MG/KG QDAY IV
     Route: 042
     Dates: start: 20050425, end: 20050506

REACTIONS (3)
  - ABDOMINAL PAIN UPPER [None]
  - DEHYDRATION [None]
  - VOMITING [None]
